FAERS Safety Report 9735086 (Version 1)
Quarter: 2013Q4

REPORT INFORMATION
  Report Type: Spontaneous
  Country: TH (occurrence: None)
  Receive Date: 20131204
  Receipt Date: 20131204
  Transmission Date: 20140711
  Serious: Yes (Hospitalization)
  Sender: FDA-Public Use
  Company Number: FK201305164

PATIENT
  Age: 42 Year
  Sex: Female

DRUGS (3)
  1. METHOTREXATE [Suspect]
     Indication: ECTOPIC PREGNANCY
     Dosage: 50 MG/M2, FOUR DOSES
  2. POSTASSIUM CHLORIDE (POTASSIUM CHLORIDE)? [Concomitant]
  3. FOLINIC ACID (FOLINIC ACID) [Concomitant]

REACTIONS (3)
  - Vaginal haemorrhage [None]
  - Hypovolaemic shock [None]
  - Exposure during pregnancy [None]
